FAERS Safety Report 13644649 (Version 1)
Quarter: 2017Q2

REPORT INFORMATION
  Report Type: Spontaneous
  Country: US (occurrence: US)
  Receive Date: 20170612
  Receipt Date: 20170612
  Transmission Date: 20170830
  Serious: No
  Sender: FDA-Public Use
  Company Number: US-ROCHE-1270666

PATIENT
  Sex: Female

DRUGS (1)
  1. XELODA [Suspect]
     Active Substance: CAPECITABINE
     Indication: BREAST CANCER STAGE IV
     Dosage: 3 TABLETS 2 TIMES A DAY, 2 WEEKS ON AND 1 WK OFF
     Route: 065

REACTIONS (5)
  - Dysgeusia [Unknown]
  - Dizziness [Unknown]
  - Fatigue [Unknown]
  - Alopecia [Unknown]
  - Palmar-plantar erythrodysaesthesia syndrome [Unknown]
